FAERS Safety Report 23333458 (Version 1)
Quarter: 2023Q4

REPORT INFORMATION
  Report Type: Other
  Country: ES (occurrence: None)
  Receive Date: 20231222
  Receipt Date: 20231222
  Transmission Date: 20240109
  Serious: Yes (Death, Congenital Anomaly, Other)
  Sender: FDA-Public Use
  Company Number: ES-ROCHE-3475802

PATIENT

DRUGS (5)
  1. BEVACIZUMAB [Suspect]
     Active Substance: BEVACIZUMAB
     Indication: Colorectal cancer metastatic
     Route: 042
  2. ARFOLITIXORIN [Suspect]
     Active Substance: ARFOLITIXORIN
     Indication: Colorectal cancer metastatic
     Dosage: 120 MG/M2 GIVEN AS TWO IV BOLUS DOSES OF 60 MG/M2
     Route: 042
  3. LEUCOVORIN [Suspect]
     Active Substance: LEUCOVORIN\LEUCOVORIN CALCIUM
     Indication: Colorectal cancer metastatic
     Dosage: GIVEN AS A SINGLE IV INFUSION)
     Route: 042
  4. FLUOROURACIL [Suspect]
     Active Substance: FLUOROURACIL
     Indication: Colorectal cancer metastatic
     Route: 040
  5. OXALIPLATIN [Suspect]
     Active Substance: OXALIPLATIN
     Indication: Colorectal cancer metastatic
     Route: 042

REACTIONS (159)
  - Death [Fatal]
  - Nausea [Unknown]
  - Diarrhoea [Unknown]
  - Constipation [Unknown]
  - Vomiting [Unknown]
  - Stomatitis [Unknown]
  - Abdominal pain upper [Unknown]
  - Peripheral sensory neuropathy [Unknown]
  - Neuropathy peripheral [Unknown]
  - Paraesthesia [Unknown]
  - Dysgeusia [Unknown]
  - Neurotoxicity [Unknown]
  - Dysaesthesia [Unknown]
  - Headache [Unknown]
  - Fatigue [Unknown]
  - Mucosal inflammation [Unknown]
  - Asthenia [Unknown]
  - Pyrexia [Unknown]
  - Neutropenia [Unknown]
  - Anaemia [Unknown]
  - Thrombocytopenia [Unknown]
  - Platelet count decreased [Unknown]
  - White blood cell count decreased [Unknown]
  - Decreased appetite [Unknown]
  - Epistaxis [Unknown]
  - Hypertension [Unknown]
  - Alopecia [Unknown]
  - Palmar-plantar erythrodysaesthesia syndrome [Unknown]
  - Urinary tract infection [Unknown]
  - Intestinal obstruction [Unknown]
  - Large intestinal obstruction [Unknown]
  - Small intestinal obstruction [Unknown]
  - Large intestine perforation [Unknown]
  - Colitis [Unknown]
  - Rectal haemorrhage [Unknown]
  - Abdominal pain [Unknown]
  - Ileus [Unknown]
  - Abdominal hernia [Unknown]
  - Crohn^s disease [Unknown]
  - Enterocolitis [Unknown]
  - Gastrointestinal haemorrhage [Unknown]
  - Inguinal hernia [Unknown]
  - Intestinal perforation [Unknown]
  - Intra-abdominal haemorrhage [Unknown]
  - Lower gastrointestinal haemorrhage [Unknown]
  - Melaena [Unknown]
  - Pancreatitis [Unknown]
  - Pancreatitis acute [Unknown]
  - Subileus [Unknown]
  - Rectal perforation [Unknown]
  - Device related infection [Unknown]
  - Sepsis [Unknown]
  - Coronavirus infection [Unknown]
  - Pneumonia [Unknown]
  - Septic shock [Unknown]
  - Urosepsis [Unknown]
  - Abdominal abscess [Unknown]
  - Abdominal sepsis [Unknown]
  - Abdominal wall abscess [Unknown]
  - Appendicitis [Unknown]
  - Bacteraemia [Unknown]
  - Biliary tract infection [Unknown]
  - Clostridium difficile infection [Unknown]
  - Ecthyma [Unknown]
  - Enterococcal infection [Unknown]
  - Epididymitis [Unknown]
  - Escherichia infection [Unknown]
  - Influenza [Unknown]
  - Intestinal fistula infection [Unknown]
  - Klebsiella infection [Unknown]
  - Liver abscess [Unknown]
  - Pelvic abscess [Unknown]
  - Peritonitis [Unknown]
  - Pneumonia viral [Unknown]
  - Pulmonary sepsis [Unknown]
  - Pyelonephritis [Unknown]
  - Respiratory tract infection [Unknown]
  - Tracheobronchitis [Unknown]
  - Pulmonary embolism [Unknown]
  - Respiratory failure [Unknown]
  - Dyspnoea [Unknown]
  - Bronchial hyperreactivity [Unknown]
  - Dyspnoea exertional [Unknown]
  - Haemoptysis [Unknown]
  - Interstitial lung disease [Unknown]
  - Lung disorder [Unknown]
  - Pleural effusion [Unknown]
  - Pneumothorax [Unknown]
  - General physical health deterioration [Unknown]
  - Catheter site extravasation [Unknown]
  - Chest pain [Unknown]
  - Condition aggravated [Unknown]
  - Febrile neutropenia [Unknown]
  - Haemolytic anaemia [Unknown]
  - Leukaemoid reaction [Unknown]
  - Pancytopenia [Unknown]
  - Fall [Unknown]
  - Hip fracture [Unknown]
  - Gastrointestinal stoma complication [Unknown]
  - Infusion related reaction [Unknown]
  - Pelvic fracture [Unknown]
  - Post procedural complication [Unknown]
  - Rib fracture [Unknown]
  - Road traffic accident [Unknown]
  - Skin laceration [Unknown]
  - Stoma site haemorrhage [Unknown]
  - Wound dehiscence [Unknown]
  - Acute kidney injury [Unknown]
  - Urinary retention [Unknown]
  - Renal colic [Unknown]
  - Ureterolithiasis [Unknown]
  - Atrial fibrillation [Unknown]
  - Acute left ventricular failure [Unknown]
  - Acute myocardial infarction [Unknown]
  - Atrial thrombosis [Unknown]
  - Bradycardia [Unknown]
  - Cardiac failure acute [Unknown]
  - Cardio-respiratory arrest [Unknown]
  - Coronary artery disease [Unknown]
  - Low cardiac output syndrome [Unknown]
  - Myocardial infarction [Unknown]
  - Hyponatraemia [Unknown]
  - Acidosis hyperchloraemic [Unknown]
  - Diabetes mellitus [Unknown]
  - Diabetic ketoacidosis [Unknown]
  - Diabetic metabolic decompensation [Unknown]
  - Hypokalaemia [Unknown]
  - Lactic acidosis [Unknown]
  - Syncope [Unknown]
  - Encephalopathy [Unknown]
  - Hypersomnia [Unknown]
  - Lethargy [Unknown]
  - Metabolic encephalopathy [Unknown]
  - Myoclonus [Unknown]
  - Peroneal nerve palsy [Unknown]
  - Status epilepticus [Unknown]
  - Transient ischaemic attack [Unknown]
  - Cholangitis [Unknown]
  - Biliary fistula [Unknown]
  - Cholelithiasis [Unknown]
  - Hepatic function abnormal [Unknown]
  - Jaundice [Unknown]
  - Portosplenomesenteric venous thrombosis [Unknown]
  - Deep vein thrombosis [Unknown]
  - Embolism arterial [Unknown]
  - Hypotension [Unknown]
  - Superior vena cava syndrome [Unknown]
  - Lung neoplasm malignant [Unknown]
  - Prostate cancer [Unknown]
  - Tumour perforation [Unknown]
  - C-reactive protein increased [Unknown]
  - Neutrophil count decreased [Unknown]
  - Back pain [Unknown]
  - Flank pain [Unknown]
  - Hypertrophic cardiomyopathy [Unknown]
  - Retinal detachment [Unknown]
  - Anaphylactic shock [Unknown]
  - Rectoprostatic fistula [Unknown]
  - Night sweats [Unknown]
